FAERS Safety Report 25622652 (Version 2)
Quarter: 2025Q3

REPORT INFORMATION
  Report Type: Spontaneous
  Country: US (occurrence: US)
  Receive Date: 20250730
  Receipt Date: 20250813
  Transmission Date: 20251020
  Serious: Yes (Other)
  Sender: ABBVIE
  Company Number: US-MLMSERVICE-20250718-PI580817-00136-2

PATIENT
  Age: 20 Year
  Weight: 72.57 kg

DRUGS (1)
  1. LEXAPRO [Suspect]
     Active Substance: ESCITALOPRAM OXALATE
     Indication: Depression
     Route: 065

REACTIONS (7)
  - Neuropathy peripheral [Recovering/Resolving]
  - Dizziness [Unknown]
  - Erectile dysfunction [Not Recovered/Not Resolved]
  - Brain fog [Unknown]
  - Anhedonia [Unknown]
  - Neuroma [Unknown]
  - Headache [Unknown]
